FAERS Safety Report 13459391 (Version 3)
Quarter: 2017Q3

REPORT INFORMATION
  Report Type: Spontaneous
  Country: US (occurrence: US)
  Receive Date: 20170419
  Receipt Date: 20170710
  Transmission Date: 20171127
  Serious: Yes (Other)
  Sender: FDA-Public Use
  Company Number: US-009507513-1703USA009465

PATIENT
  Age: 43 Year
  Sex: Female
  Weight: 78.91 kg

DRUGS (2)
  1. HYDROCHLOROTHIAZIDE. [Concomitant]
     Active Substance: HYDROCHLOROTHIAZIDE
     Indication: HYPERTENSION
     Dosage: UNK
  2. NEXPLANON [Suspect]
     Active Substance: ETONOGESTREL
     Indication: CONTRACEPTION
     Dosage: 68 MG (1 IMPLANT) / 3 YEARS
     Route: 059
     Dates: start: 20170301, end: 20170309

REACTIONS (5)
  - Unintended pregnancy [Unknown]
  - Device deployment issue [Recovered/Resolved]
  - Pregnancy with implant contraceptive [Unknown]
  - Implant site infection [Recovered/Resolved]
  - Device expulsion [Recovered/Resolved]

NARRATIVE: CASE EVENT DATE: 201703
